FAERS Safety Report 15389684 (Version 1)
Quarter: 2018Q3

REPORT INFORMATION
  Report Type: Spontaneous
  Country: US (occurrence: US)
  Receive Date: 20180917
  Receipt Date: 20180917
  Transmission Date: 20181010
  Serious: No
  Sender: FDA-Public Use
  Company Number: US-ASTRAZENECA-2018SF15631

PATIENT
  Age: 37 Year
  Sex: Female
  Weight: 84.8 kg

DRUGS (3)
  1. SYMBICORT [Suspect]
     Active Substance: BUDESONIDE\FORMOTEROL FUMARATE DIHYDRATE
     Indication: ASTHMA
     Dosage: 160/4.5 UG, AS NEEDED AS REQUIRED
     Route: 055
     Dates: start: 201709
  2. SYMBICORT [Suspect]
     Active Substance: BUDESONIDE\FORMOTEROL FUMARATE DIHYDRATE
     Indication: ASTHMA
     Dosage: 160/4.5 UG, TWO INHALATIONS TWICE A DAY AS REQUIRED
     Route: 055
     Dates: start: 201805, end: 20180822
  3. PRAMZINE [Concomitant]
     Indication: FOLLICULITIS
     Route: 061
     Dates: start: 2015

REACTIONS (27)
  - Anal inflammation [Unknown]
  - Paraesthesia oral [Unknown]
  - Blepharospasm [Unknown]
  - Chest pain [Unknown]
  - Weight increased [Unknown]
  - Weight decreased [Unknown]
  - Intentional device misuse [Unknown]
  - Thirst [Unknown]
  - Visual impairment [Unknown]
  - Palpitations [Unknown]
  - Blood glucose increased [Unknown]
  - Drug dose omission [Unknown]
  - Vision blurred [Not Recovered/Not Resolved]
  - Nausea [Unknown]
  - Headache [Unknown]
  - Temperature intolerance [Unknown]
  - Dysphagia [Unknown]
  - Hypoaesthesia [Not Recovered/Not Resolved]
  - Muscle spasms [Unknown]
  - Intentional product misuse [Unknown]
  - Feeling abnormal [Unknown]
  - Pollakiuria [Unknown]
  - Asthma [Recovering/Resolving]
  - Haemorrhoids [Recovered/Resolved]
  - Pain [Unknown]
  - Intraocular pressure increased [Unknown]
  - Vomiting [Unknown]

NARRATIVE: CASE EVENT DATE: 2017
